FAERS Safety Report 7705694-0 (Version None)
Quarter: 2011Q3

REPORT INFORMATION
  Report Type: 
  Country: None (occurrence: None)
  Receive Date: 20110824
  Receipt Date: 20110812
  Transmission Date: 20111222
  Serious: Yes (Death, Hospitalization)
  Sender: FDA-Public Use
  Company Number: HU-SANOFI-AVENTIS-2011SA043763

PATIENT
  Age: 78 Year
  Sex: Male
  Weight: 119 kg

DRUGS (9)
  1. DRONEDARONE HCL [Suspect]
     Indication: ATRIAL FIBRILLATION
     Route: 048
     Dates: start: 20110222, end: 20110228
  2. NEBIVOLOL HCL [Concomitant]
     Dates: end: 20110228
  3. CLOPAMIDE [Concomitant]
     Dates: end: 20110228
  4. KALIUM-R [Concomitant]
  5. FUROSEMIDE [Concomitant]
  6. LOSARTAN [Concomitant]
     Dates: end: 20110228
  7. IPRATROPIUM BROMIDE [Concomitant]
     Dates: end: 20110228
  8. ACENOCOUMAROL [Concomitant]
     Dosage: 10MG WEEKLY
     Dates: end: 20110228
  9. INDAPAMIDE [Concomitant]
     Dates: end: 20110228

REACTIONS (2)
  - GASTROINTESTINAL HAEMORRHAGE [None]
  - ISCHAEMIC STROKE [None]
